FAERS Safety Report 8945739 (Version 2)
Quarter: 2013Q1

REPORT INFORMATION
  Report Type: Spontaneous
  Country: US (occurrence: US)
  Receive Date: 20121204
  Receipt Date: 20130204
  Transmission Date: 20140127
  Serious: No
  Sender: FDA-Public Use
  Company Number: US-AMGEN-USASP2012069294

PATIENT
  Age: 14 Year
  Sex: Female
  Weight: 46.8 kg

DRUGS (4)
  1. ENBREL [Suspect]
     Indication: JUVENILE IDIOPATHIC ARTHRITIS
     Dosage: 50 MG, QWK
     Route: 058
     Dates: start: 20121009
  2. IBUPROFEN [Concomitant]
     Indication: PAIN
     Dosage: 600 MG, Q6 PRN
     Route: 048
     Dates: start: 20100331
  3. LORTAB                             /00917501/ [Concomitant]
     Indication: PAIN
     Dosage: 5-500, Q6 PRN
     Route: 048
     Dates: start: 20121127
  4. PREDNISONE [Concomitant]
     Dosage: 30 MG, UNK
     Route: 048

REACTIONS (6)
  - Oropharyngeal pain [Not Recovered/Not Resolved]
  - Paranasal sinus hypersecretion [Not Recovered/Not Resolved]
  - Cough [Not Recovered/Not Resolved]
  - Fatigue [Not Recovered/Not Resolved]
  - Arthralgia [Not Recovered/Not Resolved]
  - Cellulitis staphylococcal [Not Recovered/Not Resolved]
